FAERS Safety Report 19379470 (Version 4)
Quarter: 2021Q3

REPORT INFORMATION
  Report Type: Report from Study
  Country: US (occurrence: US)
  Receive Date: 20210607
  Receipt Date: 20210916
  Transmission Date: 20211014
  Serious: No
  Sender: FDA-Public Use
  Company Number: NVSC2021US121546

PATIENT
  Sex: Male

DRUGS (2)
  1. BEOVU [Suspect]
     Active Substance: BROLUCIZUMAB-DBLL
     Indication: INTRA-OCULAR INJECTION COMPLICATION
     Dosage: UNK (LEFT EYE)
     Route: 047
  2. BEOVU [Suspect]
     Active Substance: BROLUCIZUMAB-DBLL
     Indication: NEOVASCULAR AGE-RELATED MACULAR DEGENERATION

REACTIONS (5)
  - Asthenopia [Unknown]
  - Injection site discomfort [Unknown]
  - Product use in unapproved indication [Unknown]
  - Visual acuity reduced [Unknown]
  - Visual impairment [Unknown]
